FAERS Safety Report 21131523 (Version 3)
Quarter: 2022Q3

REPORT INFORMATION
  Report Type: Spontaneous
  Country: CA (occurrence: CA)
  Receive Date: 20220726
  Receipt Date: 20220914
  Transmission Date: 20221026
  Serious: Yes (Hospitalization, Other)
  Sender: FDA-Public Use
  Company Number: CA-PFIZER INC-PV202200013108

PATIENT
  Age: 57 Year
  Sex: Female

DRUGS (3)
  1. XALKORI [Suspect]
     Active Substance: CRIZOTINIB
     Indication: Lung cancer metastatic
     Dosage: UNK
     Dates: start: 20220706
  2. XALKORI [Suspect]
     Active Substance: CRIZOTINIB
     Dosage: 250 MG, DAILY
  3. XALKORI [Suspect]
     Active Substance: CRIZOTINIB
     Dosage: 250 MG, 2X/DAY

REACTIONS (6)
  - Illness [Unknown]
  - Delirium [Unknown]
  - Off label use [Unknown]
  - Asthenia [Unknown]
  - Dyspnoea [Unknown]
  - Pain [Unknown]
